FAERS Safety Report 12787367 (Version 1)
Quarter: 2016Q3

REPORT INFORMATION
  Report Type: Report from Study
  Country: BR (occurrence: BR)
  Receive Date: 20160928
  Receipt Date: 20160928
  Transmission Date: 20161109
  Serious: Yes (Congenital Anomaly, Other)
  Sender: FDA-Public Use
  Company Number: BR-HETERO LABS LTD-1057792

PATIENT
  Sex: Female

DRUGS (2)
  1. EFAVIRENZ\ LAMIVUDINE \ TENOFOVIR  DISOPROXIL FUMARATE [Suspect]
     Active Substance: EFAVIRENZ\LAMIVUDINE\TENOFOVIR
     Indication: HIV INFECTION
     Route: 064
     Dates: start: 20160302
  2. ZIDOVUDINE. [Suspect]
     Active Substance: ZIDOVUDINE
     Route: 064
     Dates: start: 20160818, end: 20160818

REACTIONS (2)
  - Foetal exposure during pregnancy [Unknown]
  - Congenital umbilical hernia [Not Recovered/Not Resolved]
